FAERS Safety Report 20194639 (Version 4)
Quarter: 2022Q1

REPORT INFORMATION
  Report Type: Spontaneous
  Country: DE (occurrence: DE)
  Receive Date: 20211216
  Receipt Date: 20220330
  Transmission Date: 20220423
  Serious: Yes (Hospitalization, Other)
  Sender: FDA-Public Use
  Company Number: DE-BAYER-2020-274870

PATIENT
  Age: 36 Year
  Sex: Female

DRUGS (12)
  1. SORAFENIB [Suspect]
     Active Substance: SORAFENIB
     Indication: Hepatocellular carcinoma
     Dosage: 800 MILLIGRAM, QD,DAILY DOSE
     Route: 065
     Dates: start: 201512
  2. SORAFENIB [Suspect]
     Active Substance: SORAFENIB
     Dosage: 600 MILLIGRAM, QD (DAILY DOSE)
     Route: 048
     Dates: start: 201601
  3. SORAFENIB [Suspect]
     Active Substance: SORAFENIB
     Dosage: 400 MILLIGRAM, QD, (DAILY DOSE
     Route: 065
     Dates: start: 201602
  4. SORAFENIB [Suspect]
     Active Substance: SORAFENIB
     Dosage: UNK
  5. CABOZANTINIB [Suspect]
     Active Substance: CABOZANTINIB
     Indication: Hepatocellular carcinoma
     Dosage: 40 MILLIGRAM, QD (DAILY DOSE)
     Route: 065
     Dates: start: 201806, end: 201904
  6. CABOZANTINIB [Suspect]
     Active Substance: CABOZANTINIB
     Dosage: UNK
     Dates: start: 201908
  7. CABOZANTINIB [Suspect]
     Active Substance: CABOZANTINIB
     Dosage: 60 MILLIGRAM, QD (DAILY DOSE)
     Route: 065
  8. CABOZANTINIB [Suspect]
     Active Substance: CABOZANTINIB
     Dosage: UNK, TEMPORARILY REDUCED TO 40 OR 20MG
     Route: 065
     Dates: end: 201904
  9. CABOZANTINIB [Suspect]
     Active Substance: CABOZANTINIB
     Dosage: 40 MILLIGRAM, QD (DAILY DOSE)
     Route: 065
     Dates: start: 201908
  10. TACROLIMUS [Concomitant]
     Active Substance: TACROLIMUS
     Indication: Immunosuppressant drug therapy
     Dosage: UNK
     Route: 065
     Dates: start: 2016
  11. SIROLIMUS [Concomitant]
     Active Substance: SIROLIMUS
     Indication: Immunosuppressant drug therapy
     Dosage: UNK
     Route: 065
     Dates: start: 2010, end: 2016
  12. CABOZANTINIB [Concomitant]
     Active Substance: CABOZANTINIB
     Dosage: UNK
     Dates: start: 201806, end: 202004

REACTIONS (14)
  - Hyperthyroidism [Unknown]
  - Hepatic function abnormal [Unknown]
  - Palmar-plantar erythrodysaesthesia syndrome [Unknown]
  - Diarrhoea [Unknown]
  - Mucosal inflammation [Unknown]
  - Transaminases increased [Recovered/Resolved]
  - Pruritus [Recovered/Resolved]
  - Hepatocellular carcinoma [Unknown]
  - Pharyngeal inflammation [Recovered/Resolved]
  - Abdominal distension [Recovered/Resolved]
  - Hypertension [Recovered/Resolved]
  - Gastrointestinal disorder [Recovered/Resolved]
  - Stomatitis [Recovered/Resolved]
  - Off label use [Recovered/Resolved]

NARRATIVE: CASE EVENT DATE: 20170201
